FAERS Safety Report 7676872-4 (Version None)
Quarter: 2011Q3

REPORT INFORMATION
  Report Type: 
  Country: None (occurrence: None)
  Receive Date: 20110811
  Receipt Date: 20110729
  Transmission Date: 20111222
  Serious: Yes (Other)
  Sender: FDA-Public Use
  Company Number: PHHY2011BR68943

PATIENT
  Sex: Female

DRUGS (2)
  1. DIOVAN HCT [Suspect]
     Dosage: 160/12.5 MG
  2. ETNA [Concomitant]
     Dosage: UNK UKN, UNK

REACTIONS (15)
  - PAIN [None]
  - ANXIETY [None]
  - EXOSTOSIS [None]
  - SINUSITIS [None]
  - BONE PAIN [None]
  - FIBROMYALGIA [None]
  - EYE PRURITUS [None]
  - TEMPOROMANDIBULAR JOINT SYNDROME [None]
  - TENDONITIS [None]
  - BACK PAIN [None]
  - ARTHROPATHY [None]
  - SKIN DISCOLOURATION [None]
  - INTERVERTEBRAL DISC PROTRUSION [None]
  - DERMATITIS [None]
  - BACK DISORDER [None]
